FAERS Safety Report 17000567 (Version 1)
Quarter: 2019Q4

REPORT INFORMATION
  Report Type: Spontaneous
  Country: GB (occurrence: GB)
  Receive Date: 20191106
  Receipt Date: 20191106
  Transmission Date: 20200122
  Serious: Yes (Hospitalization, Other)
  Sender: FDA-Public Use
  Company Number: GB-MYLANLABS-2019M1105729

PATIENT
  Age: 48 Year
  Sex: Female
  Weight: 60 kg

DRUGS (2)
  1. OMEPRAZOLE. [Concomitant]
     Active Substance: OMEPRAZOLE
     Dosage: UNK
  2. IBUPROFEN. [Suspect]
     Active Substance: IBUPROFEN
     Indication: COSTOCHONDRITIS
     Dosage: 400 MILLIGRAM
     Route: 048
     Dates: start: 20181121, end: 20181209

REACTIONS (4)
  - Incorrect product administration duration [Unknown]
  - Duodenal ulcer haemorrhage [Recovered/Resolved]
  - Acidosis [Unknown]
  - Gastrooesophageal reflux disease [Unknown]

NARRATIVE: CASE EVENT DATE: 20181209
